FAERS Safety Report 11537717 (Version 2)
Quarter: 2015Q4

REPORT INFORMATION
  Report Type: Spontaneous
  Country: PR (occurrence: PR)
  Receive Date: 20150922
  Receipt Date: 20151019
  Transmission Date: 20160304
  Serious: No
  Sender: FDA-Public Use
  Company Number: PR-PFIZER INC-2015310160

PATIENT
  Age: 72 Year
  Sex: Female
  Weight: 82 kg

DRUGS (4)
  1. LYRICA [Suspect]
     Active Substance: PREGABALIN
     Dosage: 150 MG, 2X/DAY
  2. LYRICA [Suspect]
     Active Substance: PREGABALIN
     Dosage: 200 MG, 2X/DAY
  3. LYRICA [Suspect]
     Active Substance: PREGABALIN
     Indication: PAIN MANAGEMENT
     Dosage: 50 MG, 2X/DAY
  4. LYRICA [Suspect]
     Active Substance: PREGABALIN
     Dosage: 100 MG, 2X/DAY

REACTIONS (3)
  - Joint swelling [Unknown]
  - Drug effect incomplete [Unknown]
  - Weight increased [Unknown]

NARRATIVE: CASE EVENT DATE: 2014
